FAERS Safety Report 12147233 (Version 2)
Quarter: 2016Q2

REPORT INFORMATION
  Report Type: Report from Study
  Country: US (occurrence: US)
  Receive Date: 20160304
  Receipt Date: 20160412
  Transmission Date: 20160815
  Serious: Yes (Other)
  Sender: FDA-Public Use
  Company Number: US-BAYER-2016-036692

PATIENT
  Age: 49 Year
  Sex: Female

DRUGS (2)
  1. MIRENA [Suspect]
     Active Substance: LEVONORGESTREL
     Indication: MENSTRUATION IRREGULAR
  2. MIRENA [Suspect]
     Active Substance: LEVONORGESTREL
     Indication: MENOMETRORRHAGIA
     Dosage: 20 MCG/24HR, CONT
     Route: 015
     Dates: start: 20130108, end: 20151119

REACTIONS (6)
  - Therapeutic response unexpected [None]
  - Polyp [None]
  - Off label use of device [None]
  - Tumour haemorrhage [None]
  - Unintentional medical device removal [None]
  - Cervical dysplasia [None]

NARRATIVE: CASE EVENT DATE: 20151119
